FAERS Safety Report 13291925 (Version 4)
Quarter: 2017Q2

REPORT INFORMATION
  Report Type: Spontaneous
  Country: ES (occurrence: ES)
  Receive Date: 20170303
  Receipt Date: 20170517
  Transmission Date: 20170830
  Serious: Yes (Other)
  Sender: FDA-Public Use
  Company Number: ES-LEO PHARMA-300058

PATIENT
  Age: 86 Year
  Sex: Female

DRUGS (2)
  1. PICATO [Suspect]
     Active Substance: INGENOL MEBUTATE
     Indication: ACTINIC KERATOSIS
     Route: 061
     Dates: start: 201612
  2. SOLARAZE [Concomitant]
     Active Substance: DICLOFENAC SODIUM
     Indication: ACTINIC KERATOSIS
     Dosage: INTERMITTENT USE FROM 2013-2016. ALONE OR IN COMBINATION WITH CRYOTHERAPY

REACTIONS (1)
  - Squamous cell carcinoma of skin [Unknown]
